FAERS Safety Report 14137699 (Version 2)
Quarter: 2017Q4

REPORT INFORMATION
  Report Type: Report from Study
  Country: US (occurrence: US)
  Receive Date: 20171027
  Receipt Date: 20171127
  Transmission Date: 20180321
  Serious: Yes (Hospitalization)
  Sender: FDA-Public Use
  Company Number: US-BAYER-2017-184172

PATIENT
  Age: 51 Year
  Sex: Male

DRUGS (3)
  1. STIVARGA [Suspect]
     Active Substance: REGORAFENIB
     Indication: RECTOSIGMOID CANCER
     Dosage: 160 MG, 21 DAYS ON AND 7 DAYS OFF
     Route: 048
     Dates: start: 20170906, end: 2017
  2. STIVARGA [Suspect]
     Active Substance: REGORAFENIB
     Indication: RECTOSIGMOID CANCER
     Dosage: DAILY DOSE 160 MG
     Route: 048
     Dates: end: 2017
  3. STIVARGA [Suspect]
     Active Substance: REGORAFENIB
     Indication: RECTOSIGMOID CANCER
     Dosage: DAILY DOSE 80 MG, 21 ON AND 7 OFF
     Route: 048
     Dates: start: 2017

REACTIONS (5)
  - Hospitalisation [None]
  - Laboratory test abnormal [None]
  - Pain in extremity [None]
  - Rash macular [None]
  - Limb injury [None]

NARRATIVE: CASE EVENT DATE: 2017
